FAERS Safety Report 10154962 (Version 1)
Quarter: 2014Q2

REPORT INFORMATION
  Report Type: Spontaneous
  Country: US (occurrence: US)
  Receive Date: 20140506
  Receipt Date: 20140506
  Transmission Date: 20141212
  Serious: No
  Sender: FDA-Public Use
  Company Number: US-TEVA-479839USA

PATIENT
  Age: 53 Year
  Sex: Female

DRUGS (2)
  1. NUVIGIL [Suspect]
     Dates: start: 20140421, end: 20140421
  2. NUVIGIL [Suspect]
     Dates: start: 20140426

REACTIONS (4)
  - Adverse event [Unknown]
  - Headache [Recovered/Resolved]
  - Nausea [Recovered/Resolved]
  - Dizziness [Recovered/Resolved]
